FAERS Safety Report 5555582-3 (Version None)
Quarter: 2007Q4

REPORT INFORMATION
  Report Type: 
  Country: None (occurrence: None)
  Receive Date: 20071213
  Receipt Date: 20071205
  Transmission Date: 20080405
  Serious: Yes (Death)
  Sender: FDA-Public Use
  Company Number: JP-BRISTOL-MYERS SQUIBB COMPANY-13984489

PATIENT
  Age: 38 Year
  Sex: Female

DRUGS (10)
  1. ARIPIPRAZOLE [Suspect]
     Indication: SCHIZOPHRENIA
     Dosage: 17MAR TO 23MAR-18MG,24MAR TO 29MAR-24MG,29MAR TO 23 MAY-30MG,24MAY07 TO 27MAY07-18MG
     Route: 048
     Dates: start: 20070317
  2. PEROSPIRONE [Concomitant]
     Route: 048
     Dates: start: 20070524, end: 20070527
  3. CHLORPROMAZINE HCL [Concomitant]
     Route: 048
     Dates: start: 20070517, end: 20070527
  4. CHLORPROMAZINE + PROMETHAZINE [Concomitant]
     Route: 048
     Dates: start: 20070509, end: 20070527
  5. QUAZEPAM [Concomitant]
     Route: 048
     Dates: start: 20070508, end: 20070527
  6. BEZAFIBRATE [Concomitant]
     Route: 048
     Dates: start: 20070317, end: 20070527
  7. CARBAMAZEPINE [Concomitant]
     Dosage: 400MG-17MAR TO 23MAR,600MG-24MAR TO 16MAY,800MG-17MAY TO 27MAY07
     Route: 048
     Dates: start: 20070317, end: 20070527
  8. RISPERIDONE [Concomitant]
     Dosage: 4MG TAKEN FROM 17MAR-28MAR, 2MG FROM 29MAR-04APR07
     Route: 048
     Dates: start: 20070317, end: 20070404
  9. SENNOSIDE [Concomitant]
     Dosage: 24MG TAKEN ON 17/MAR/07 AND 8/MAY/07
     Route: 048
     Dates: start: 20070517, end: 20070527
  10. SODIUM PICOSULFATE [Concomitant]
     Route: 048
     Dates: start: 20070524, end: 20070527

REACTIONS (1)
  - CARDIAC FAILURE [None]
